FAERS Safety Report 10871936 (Version 1)
Quarter: 2015Q1

REPORT INFORMATION
  Report Type: Spontaneous
  Country: FR (occurrence: FR)
  Receive Date: 20150226
  Receipt Date: 20150226
  Transmission Date: 20150721
  Serious: Yes (Hospitalization, Other)
  Sender: FDA-Public Use
  Company Number: FR-PFIZER INC-2015067205

PATIENT
  Age: 63 Year
  Sex: Male

DRUGS (10)
  1. BREAKYL [Suspect]
     Active Substance: FENTANYL
     Indication: PAIN
     Dosage: ONE DOSE OF 400 ?G AND, ADDITIONAL DOSE OF 200 ?G, AS NEEDED
  2. BISOPROLOL FUMARATE. [Concomitant]
     Active Substance: BISOPROLOL FUMARATE
     Dosage: UNK
  3. LYRICA [Concomitant]
     Active Substance: PREGABALIN
     Dosage: UNK
  4. EDUCTYL [Concomitant]
     Active Substance: POTASSIUM BITARTRATE\SODIUM BICARBONATE
     Dosage: UNK
  5. MODANE [Concomitant]
     Dosage: UNK
  6. LERCANIDIPINE HYDROCHLORIDE [Concomitant]
     Active Substance: LERCANIDIPINE HYDROCHLORIDE
     Dosage: UNK
  7. INEXIUM [Concomitant]
     Active Substance: ESOMEPRAZOLE
     Dosage: UNK
  8. SKENAN [Suspect]
     Active Substance: MORPHINE SULFATE
     Indication: ABDOMINAL PAIN
     Dosage: 130 MG, TWICE DAILY
     Route: 048
     Dates: start: 20141212
  9. LARGACTIL [Concomitant]
     Active Substance: CHLORPROMAZINE
     Dosage: UNK
  10. XANAX [Suspect]
     Active Substance: ALPRAZOLAM
     Indication: ANXIETY
     Dosage: 0.25 MG, DAILY
     Route: 048
     Dates: start: 20141129, end: 20141215

REACTIONS (2)
  - Somnolence [Recovered/Resolved with Sequelae]
  - Miosis [Unknown]

NARRATIVE: CASE EVENT DATE: 20141214
